FAERS Safety Report 6345781-5 (Version None)
Quarter: 2009Q3

REPORT INFORMATION
  Report Type: 
  Country: None (occurrence: None)
  Receive Date: 20090909
  Receipt Date: 20090902
  Transmission Date: 20100115
  Serious: Yes (Death)
  Sender: FDA-Public Use
  Company Number: JP-GENENTECH-288093

PATIENT
  Sex: Male

DRUGS (4)
  1. RITUXAN [Suspect]
     Indication: NON-HODGKIN'S LYMPHOMA
     Dosage: 640 MG, UNK
     Route: 042
     Dates: start: 20070618, end: 20070730
  2. PREDNISOLONE [Suspect]
     Indication: CHEMOTHERAPY
     Dosage: UNK
     Route: 048
     Dates: start: 20070530, end: 20070804
  3. CYCLOPHOSPHAMIDE [Concomitant]
     Indication: CHEMOTHERAPY
     Dosage: 1275 MG, UNK
     Route: 042
     Dates: start: 20070530, end: 20070731
  4. VINCRISTINE [Concomitant]
     Indication: CHEMOTHERAPY
     Dosage: 2 MG, UNK
     Route: 042
     Dates: start: 20070530, end: 20070731

REACTIONS (1)
  - PNEUMOCYSTIS JIROVECI PNEUMONIA [None]
